FAERS Safety Report 16801551 (Version 1)
Quarter: 2019Q3

REPORT INFORMATION
  Report Type: Spontaneous
  Country: CH (occurrence: CH)
  Receive Date: 20190912
  Receipt Date: 20190912
  Transmission Date: 20191005
  Serious: Yes (Hospitalization)
  Sender: FDA-Public Use
  Company Number: CH-OXFORD PHARMACEUTICALS, LLC-2019OXF00127

PATIENT
  Age: 51 Year
  Sex: Female

DRUGS (6)
  1. RISPERIDONE. [Suspect]
     Active Substance: RISPERIDONE
     Indication: SCHIZOPHRENIA
     Dosage: UNSPECIFIED ^DEPOT^ PRODUCT, BY UNSPECIFIED INJECTION
     Route: 065
  2. METHADONE [Concomitant]
     Active Substance: METHADONE HYDROCHLORIDE
     Dosage: 150 MG, 1X/DAY
     Route: 065
  3. HALOPERIDOL DECANOATE DEPOT [Concomitant]
     Route: 065
  4. METHADONE [Concomitant]
     Active Substance: METHADONE HYDROCHLORIDE
     Route: 065
  5. RISPERIDONE. [Suspect]
     Active Substance: RISPERIDONE
     Dosage: 25 MG, 2X/MONTH
     Route: 065
  6. BENZODIAZEPINES [Concomitant]
     Active Substance: BENZODIAZEPINE
     Route: 065

REACTIONS (1)
  - Pleurothotonus [Recovered/Resolved]
